FAERS Safety Report 6316653-7 (Version None)
Quarter: 2009Q3

REPORT INFORMATION
  Report Type: 
  Country: None (occurrence: None)
  Receive Date: 20090820
  Receipt Date: 20090806
  Transmission Date: 20100115
  Serious: Yes (Other)
  Sender: FDA-Public Use
  Company Number: AU-PFIZER INC-2009251571

PATIENT
  Age: 56 Year

DRUGS (6)
  1. DILANTIN [Suspect]
     Indication: GRAND MAL CONVULSION
     Dosage: 200 MG, 2X/DAY
  2. TOPAMAX [Concomitant]
     Dosage: 150MG IN THE MORNING AND 200MG AT NIGHT
  3. KEPPRA [Concomitant]
     Dosage: 250 MG, 2X/DAY
  4. RIVOTRIL [Concomitant]
     Dosage: 6 MG, 2X/DAY
  5. PROTHIADEN [Concomitant]
     Dosage: 100 MG, 1X/DAY
  6. INDOCIN [Concomitant]
     Dosage: 1 UNK, 1X/DAY
     Route: 054

REACTIONS (2)
  - ANTICONVULSANT DRUG LEVEL ABOVE THERAPEUTIC [None]
  - TREMOR [None]
